FAERS Safety Report 20484323 (Version 1)
Quarter: 2022Q1

REPORT INFORMATION
  Report Type: Spontaneous
  Country: FR (occurrence: FR)
  Receive Date: 20220217
  Receipt Date: 20220217
  Transmission Date: 20220424
  Serious: Yes (Life-Threatening, Hospitalization)
  Sender: FDA-Public Use
  Company Number: FR-MYLANLABS-2022M1012859

PATIENT
  Age: 55 Year
  Sex: Male

DRUGS (8)
  1. PREDNISONE [Suspect]
     Active Substance: PREDNISONE
     Indication: Follicular lymphoma stage I
     Dosage: UNK; CHOP CHEMOTHERAPY REGIMEN
     Route: 065
  2. OBINUTUZUMAB [Suspect]
     Active Substance: OBINUTUZUMAB
     Indication: Follicular lymphoma stage I
     Dosage: UNK
     Route: 065
  3. CYCLOPHOSPHAMIDE [Suspect]
     Active Substance: CYCLOPHOSPHAMIDE
     Indication: Follicular lymphoma stage I
     Dosage: UNK; ~CHOP CHEMOTHERAPY REGIMEN
     Route: 065
  4. DOXORUBICIN [Suspect]
     Active Substance: DOXORUBICIN
     Indication: Follicular lymphoma stage I
     Dosage: UNK; CHOP CHEMOTHERAPY REGIMEN
     Route: 065
  5. VINCRISTINE [Suspect]
     Active Substance: VINCRISTINE
     Indication: Follicular lymphoma stage I
     Dosage: UNK; CHOP CHEMOTHERAPY REGIMEN
     Route: 065
  6. BAMLANIVIMAB [Concomitant]
     Active Substance: BAMLANIVIMAB
     Indication: COVID-19
     Dosage: 700 MILLIGRAM, TOTAL; ONE DOSE ON APRIL 15TH
     Route: 065
  7. ETESEVIMAB [Concomitant]
     Active Substance: ETESEVIMAB
     Indication: COVID-19
     Dosage: 1400 MILLIGRAM, TOTAL; ONE DOSE ON APRIL 15TH
     Route: 065
  8. COVID-19 CONVALESCENT PLASMA [Concomitant]
     Active Substance: COVID-19 CONVALESCENT PLASMA
     Indication: COVID-19
     Dosage: UNK; ON APRIL 30TH AND MAY 1ST
     Route: 065

REACTIONS (2)
  - COVID-19 pneumonia [Recovered/Resolved]
  - Hypoxia [Recovered/Resolved]
